FAERS Safety Report 4371632-4 (Version None)
Quarter: 2004Q2

REPORT INFORMATION
  Report Type: 
  Country: None (occurrence: None)
  Receive Date: 20040601
  Receipt Date: 20040519
  Transmission Date: 20050107
  Serious: No
  Sender: FDA-Public Use
  Company Number: 04H-163-0261607-00

PATIENT
  Age: 50 Year
  Sex: Female
  Weight: 68 kg

DRUGS (1)
  1. PONTOCAINE HCL 2%, USP, FOR RHINOLARYNGOLOGY (PONTOCAINE HYDROCHLORIDE [Suspect]
     Dosage: ONCE, NASAL
     Route: 045
     Dates: start: 20040511, end: 20040511

REACTIONS (4)
  - BACK PAIN [None]
  - DIFFICULTY IN WALKING [None]
  - MEDICATION ERROR [None]
  - MOBILITY DECREASED [None]
